FAERS Safety Report 7388436-0 (Version None)
Quarter: 2011Q2

REPORT INFORMATION
  Report Type: 
  Country: None (occurrence: None)
  Receive Date: 20110401
  Receipt Date: 20110304
  Transmission Date: 20111010
  Serious: No
  Sender: FDA-Public Use
  Company Number: US-B.I. PHARMACEUTICALS,INC./RIDGEFIELD-2011-BP-06516BP

PATIENT
  Sex: Female

DRUGS (7)
  1. TOPROL-XL [Concomitant]
     Indication: HYPERTENSION
  2. PRADAXA [Suspect]
     Dosage: 300 MG
     Route: 048
     Dates: start: 20110201
  3. SPIRONOLACTONE [Concomitant]
     Indication: DIURETIC THERAPY
     Dosage: 25 MG
     Route: 048
  4. TOPROL-XL [Concomitant]
     Indication: HEART RATE ABNORMAL
     Dosage: 75 MG
     Route: 048
  5. XANAX [Concomitant]
     Indication: HEADACHE
     Dosage: 0.25 MG
     Route: 048
  6. LIPITOR [Concomitant]
     Indication: BLOOD CHOLESTEROL INCREASED
     Route: 048
  7. PRADAXA [Suspect]
     Indication: ATRIAL FIBRILLATION
     Dosage: 150 MG
     Route: 048
     Dates: start: 20110101, end: 20110201

REACTIONS (5)
  - HEADACHE [None]
  - ANAL PRURITUS [None]
  - TINNITUS [None]
  - URINE OUTPUT DECREASED [None]
  - ABDOMINAL PAIN UPPER [None]
